FAERS Safety Report 19647379 (Version 10)
Quarter: 2023Q2

REPORT INFORMATION
  Report Type: Report from Study
  Country: US (occurrence: US)
  Receive Date: 20210802
  Receipt Date: 20230529
  Transmission Date: 20230722
  Serious: Yes (Hospitalization, Other)
  Sender: FDA-Public Use
  Company Number: US-TAKEDA-2021TUS046960

PATIENT
  Sex: Female

DRUGS (1)
  1. HUMAN IMMUNOGLOBULIN G [Suspect]
     Active Substance: HUMAN IMMUNOGLOBULIN G
     Indication: Primary immunodeficiency syndrome
     Dosage: UNK
     Route: 065

REACTIONS (18)
  - Pneumonia [Recovered/Resolved]
  - Leukaemia [Unknown]
  - Blindness unilateral [Recovered/Resolved]
  - Skin disorder [Unknown]
  - COVID-19 [Recovering/Resolving]
  - Speech disorder [Unknown]
  - Blood immunoglobulin G decreased [Unknown]
  - Memory impairment [Unknown]
  - Renal disorder [Unknown]
  - Loss of personal independence in daily activities [Unknown]
  - Depression [Unknown]
  - Liver disorder [Unknown]
  - Anxiety [Unknown]
  - Fatigue [Unknown]
  - Sinus disorder [Unknown]
  - Visual impairment [Unknown]
  - Muscle spasms [Unknown]
  - Malaise [Unknown]
